FAERS Safety Report 14382765 (Version 3)
Quarter: 2018Q1

REPORT INFORMATION
  Report Type: Spontaneous
  Country: US (occurrence: US)
  Receive Date: 20180113
  Receipt Date: 20180221
  Transmission Date: 20180509
  Serious: Yes (Hospitalization)
  Sender: FDA-Public Use
  Company Number: PHEH2018US001670

PATIENT
  Sex: Male

DRUGS (2)
  1. AFINITOR [Suspect]
     Active Substance: EVEROLIMUS
     Indication: RENAL CANCER
     Route: 065
  2. LENVATINIB [Suspect]
     Active Substance: LENVATINIB
     Indication: RENAL CANCER
     Dosage: 14 MG, QD
     Route: 048

REACTIONS (7)
  - Abdominal discomfort [Unknown]
  - Spinal pain [Unknown]
  - Fatigue [Unknown]
  - Nausea [Unknown]
  - Dry skin [Unknown]
  - Superior mesenteric artery syndrome [Unknown]
  - Pain [Unknown]
